FAERS Safety Report 12560837 (Version 5)
Quarter: 2016Q4

REPORT INFORMATION
  Report Type: Spontaneous
  Country: US (occurrence: US)
  Receive Date: 20160715
  Receipt Date: 20161019
  Transmission Date: 20170207
  Serious: No
  Sender: FDA-Public Use
  Company Number: US-009507513-1607USA003704

PATIENT
  Age: 41 Year
  Sex: Female
  Weight: 127.89 kg

DRUGS (1)
  1. NEXPLANON [Suspect]
     Active Substance: ETONOGESTREL
     Dosage: UNK
     Route: 059
     Dates: start: 20160425

REACTIONS (3)
  - Complication associated with device [Not Recovered/Not Resolved]
  - Menstruation irregular [Unknown]
  - Amenorrhoea [Recovered/Resolved]

NARRATIVE: CASE EVENT DATE: 2016
